FAERS Safety Report 15592234 (Version 2)
Quarter: 2018Q4

REPORT INFORMATION
  Report Type: Spontaneous
  Country: CA (occurrence: CA)
  Receive Date: 20181107
  Receipt Date: 20181114
  Transmission Date: 20190205
  Serious: Yes (Other)
  Sender: FDA-Public Use
  Company Number: CA-GILEAD-2018-0372351

PATIENT
  Age: 29 Year
  Sex: Male

DRUGS (1)
  1. BIKTARVY [Suspect]
     Active Substance: BICTEGRAVIR SODIUM\EMTRICITABINE\TENOFOVIR ALAFENAMIDE FUMARATE
     Indication: PRODUCT USED FOR UNKNOWN INDICATION
     Dosage: UNK
     Route: 065
     Dates: start: 20181001, end: 20181025

REACTIONS (2)
  - Acute kidney injury [Recovered/Resolved]
  - Rash generalised [Recovering/Resolving]

NARRATIVE: CASE EVENT DATE: 20181008
